FAERS Safety Report 18544130 (Version 1)
Quarter: 2020Q4

REPORT INFORMATION
  Report Type: Other
  Country: EG (occurrence: EG)
  Receive Date: 20201125
  Receipt Date: 20201125
  Transmission Date: 20210114
  Serious: No
  Sender: FDA-Public Use
  Company Number: EG-ROCHE-2710593

PATIENT
  Age: 35 Year
  Sex: Female
  Weight: 79 kg

DRUGS (1)
  1. OCREVUS [Suspect]
     Active Substance: OCRELIZUMAB
     Indication: MULTIPLE SCLEROSIS
     Route: 042
     Dates: start: 20200429

REACTIONS (5)
  - Nasopharyngitis [Recovered/Resolved]
  - Ear pain [Not Recovered/Not Resolved]
  - Influenza [Recovered/Resolved]
  - Oropharyngeal pain [Not Recovered/Not Resolved]
  - Nasal congestion [Not Recovered/Not Resolved]

NARRATIVE: CASE EVENT DATE: 202011
